FAERS Safety Report 5504337-4 (Version None)
Quarter: 2007Q4

REPORT INFORMATION
  Report Type: 
  Country: None (occurrence: None)
  Receive Date: 20071101
  Receipt Date: 20071024
  Transmission Date: 20080405
  Serious: Yes (Hospitalization, Other)
  Sender: FDA-Public Use
  Company Number: US-PFIZER INC-2006014180

PATIENT
  Sex: Female
  Weight: 81.6 kg

DRUGS (3)
  1. CELEBREX [Suspect]
     Indication: PAIN
     Route: 048
  2. VIOXX [Suspect]
     Indication: RHEUMATOID ARTHRITIS
     Route: 048
  3. VIOXX [Suspect]
     Indication: OSTEOARTHRITIS

REACTIONS (5)
  - DEEP VEIN THROMBOSIS [None]
  - DYSPEPSIA [None]
  - EYE DISORDER [None]
  - HEART INJURY [None]
  - RETINAL ARTERY OCCLUSION [None]
